FAERS Safety Report 4647335-5 (Version None)
Quarter: 2005Q2

REPORT INFORMATION
  Report Type: 
  Country: None (occurrence: None)
  Receive Date: 20050426
  Receipt Date: 20050415
  Transmission Date: 20051028
  Serious: Yes (Life-Threatening, Hospitalization)
  Sender: FDA-Public Use
  Company Number: 2005AC00563

PATIENT
  Age: 45 Year
  Sex: Female

DRUGS (6)
  1. QUETIAPINE FUMARATE [Suspect]
     Dosage: 10 G
  2. VERAPAMIL [Suspect]
     Dosage: 7.2 G
  3. DOXEPIN HCL [Suspect]
     Dosage: 1.6 G
  4. DIAZEPAM [Suspect]
     Dosage: 2 G
  5. TEMAZEPAM [Suspect]
     Dosage: 200 MG
  6. CLONAZEPAM [Suspect]
     Dosage: 100 MG

REACTIONS (12)
  - ABDOMINAL DISTENSION [None]
  - ATRIOVENTRICULAR BLOCK FIRST DEGREE [None]
  - CARDIAC ARREST [None]
  - DRUG TOXICITY [None]
  - EJECTION FRACTION DECREASED [None]
  - HAEMODIALYSIS [None]
  - INTENTIONAL MISUSE [None]
  - LOSS OF CONSCIOUSNESS [None]
  - METABOLIC ACIDOSIS [None]
  - MYOCARDIAL ISCHAEMIA [None]
  - OVERDOSE [None]
  - SHOCK [None]
